FAERS Safety Report 7433522-X (Version None)
Quarter: 2011Q2

REPORT INFORMATION
  Report Type: 
  Country: None (occurrence: None)
  Receive Date: 20110422
  Receipt Date: 20110419
  Transmission Date: 20111010
  Serious: Yes (Hospitalization)
  Sender: FDA-Public Use
  Company Number: JP-ABBOTT-11P-087-0709768-00

PATIENT
  Age: 17 Year
  Sex: Female

DRUGS (1)
  1. HUMIRA [Suspect]
     Indication: CROHN'S DISEASE
     Route: 058
     Dates: start: 20101110

REACTIONS (4)
  - MALAISE [None]
  - HYPERPHAGIA [None]
  - CROHN'S DISEASE [None]
  - BLOOD CREATINE PHOSPHOKINASE INCREASED [None]
